FAERS Safety Report 4788495-5 (Version None)
Quarter: 2005Q3

REPORT INFORMATION
  Report Type: 
  Country: None (occurrence: None)
  Receive Date: 20050915
  Receipt Date: 20050516
  Transmission Date: 20060218
  Serious: No
  Sender: FDA-Public Use
  Company Number: BDI-007197

PATIENT
  Age: 21 Year
  Sex: Female
  Weight: 68 kg

DRUGS (2)
  1. MULTIHANCE [Suspect]
     Indication: ARTERIOGRAM CAROTID
     Dosage: 20  ML ONCE IV
     Route: 042
     Dates: start: 20050513, end: 20050513
  2. MULTIHANCE [Suspect]
     Indication: NUCLEAR MAGNETIC RESONANCE IMAGING
     Dosage: 20  ML ONCE IV
     Route: 042
     Dates: start: 20050513, end: 20050513

REACTIONS (1)
  - VOMITING [None]
